FAERS Safety Report 5098272-6 (Version None)
Quarter: 2006Q3

REPORT INFORMATION
  Report Type: 
  Country: None (occurrence: None)
  Receive Date: 20060906
  Receipt Date: 20060829
  Transmission Date: 20061208
  Serious: Yes (Hospitalization)
  Sender: FDA-Public Use
  Company Number: JP-AVENTIS-200612694JP

PATIENT
  Age: 60 Year
  Sex: Male

DRUGS (3)
  1. ALLEGRA [Suspect]
     Indication: URTICARIA CHRONIC
     Route: 048
  2. CORTICOSTEROIDS [Concomitant]
     Indication: URTICARIA CHRONIC
     Route: 003
  3. COLONEL [Concomitant]
     Indication: GASTROINTESTINAL DISORDER
     Route: 048

REACTIONS (2)
  - ASPARTATE AMINOTRANSFERASE INCREASED [None]
  - LIVER DISORDER [None]
